FAERS Safety Report 24682629 (Version 1)
Quarter: 2024Q4

REPORT INFORMATION
  Report Type: Other
  Country: CN (occurrence: CN)
  Receive Date: 20241130
  Receipt Date: 20241130
  Transmission Date: 20250115
  Serious: Yes (Hospitalization, Other)
  Sender: DEXCEL
  Company Number: CN-DEXPHARM-2024-4579

PATIENT
  Age: 27 Year
  Sex: Male

DRUGS (4)
  1. SILIBININ [Concomitant]
     Active Substance: SILIBININ
  2. URSODIOL [Concomitant]
     Active Substance: URSODIOL
  3. OMEPRAZOLE [Suspect]
     Active Substance: OMEPRAZOLE
     Indication: Chronic gastritis
     Dosage: A DAILY DOSE OF 40 MG
  4. REPAGLINIDE [Concomitant]
     Active Substance: DULOXETINE HYDROCHLORIDE\REPAGLINIDE\TICAGRELOR

REACTIONS (1)
  - Insulin autoimmune syndrome [Recovered/Resolved]
